FAERS Safety Report 11875582 (Version 5)
Quarter: 2016Q1

REPORT INFORMATION
  Report Type: Spontaneous
  Country: US (occurrence: US)
  Receive Date: 20151229
  Receipt Date: 20160314
  Transmission Date: 20160526
  Serious: No
  Sender: FDA-Public Use
  Company Number: PHEH2015US027196

PATIENT
  Age: 68 Year
  Sex: Female

DRUGS (4)
  1. EXFORGE [Suspect]
     Active Substance: AMLODIPINE BESYLATE\VALSARTAN
     Dosage: 1 DF (10 MG AMLODIPINE/ 160 MG VALSARTAN), QOD
     Route: 048
  2. EXFORGE [Suspect]
     Active Substance: AMLODIPINE BESYLATE\VALSARTAN
     Indication: HYPERTENSION
     Dosage: 1 DF (10 MG AMLODIPINE/ 160 MG VALSARTAN), QD
     Route: 048
  3. AMLODIPINE [Suspect]
     Active Substance: AMLODIPINE BESYLATE
     Indication: HYPERTENSION
     Dosage: 1 DF, QOD
     Route: 048
  4. VYTORIN [Concomitant]
     Active Substance: EZETIMIBE\SIMVASTATIN
     Indication: PRODUCT USED FOR UNKNOWN INDICATION
     Dosage: UNK, QD
     Route: 048

REACTIONS (7)
  - Throat irritation [Unknown]
  - Sensation of foreign body [Recovered/Resolved]
  - Throat tightness [Recovered/Resolved]
  - Upper-airway cough syndrome [Unknown]
  - Joint swelling [Recovered/Resolved]
  - Gastrooesophageal reflux disease [Unknown]
  - Expired product administered [Unknown]

NARRATIVE: CASE EVENT DATE: 201511
